FAERS Safety Report 5578976-9 (Version None)
Quarter: 2007Q4

REPORT INFORMATION
  Report Type: 
  Country: None (occurrence: None)
  Receive Date: 20071228
  Receipt Date: 20071220
  Transmission Date: 20080405
  Serious: Yes (Death)
  Sender: FDA-Public Use
  Company Number: 18079

PATIENT
  Age: 47 Year
  Sex: Male
  Weight: 65.6 kg

DRUGS (5)
  1. CYTARABINE [Suspect]
     Indication: DRUG USE FOR UNKNOWN INDICATION
  2. FLUDARABINE [Suspect]
     Indication: DRUG USE FOR UNKNOWN INDICATION
  3. PENTOSTATIN [Suspect]
     Indication: DRUG USE FOR UNKNOWN INDICATION
  4. NEUPOGEN [Suspect]
     Indication: DRUG USE FOR UNKNOWN INDICATION
  5. GLEEVEC [Concomitant]

REACTIONS (10)
  - ACUTE MYELOID LEUKAEMIA [None]
  - ASCITES [None]
  - ASPERGILLOSIS [None]
  - CARDIAC FAILURE CONGESTIVE [None]
  - CLOSTRIDIAL INFECTION [None]
  - HEPATIC FUNCTION ABNORMAL [None]
  - MALIGNANT NEOPLASM PROGRESSION [None]
  - MASTOCYTOSIS [None]
  - PANCYTOPENIA [None]
  - STAPHYLOCOCCAL BACTERAEMIA [None]
